FAERS Safety Report 20495377 (Version 1)
Quarter: 2022Q1

REPORT INFORMATION
  Report Type: Spontaneous
  Country: US (occurrence: US)
  Receive Date: 20220221
  Receipt Date: 20220221
  Transmission Date: 20220423
  Serious: No
  Sender: FDA-Public Use
  Company Number: US-SANOFI-00976977

PATIENT
  Age: 33 Year
  Sex: Female

DRUGS (1)
  1. KEVZARA [Suspect]
     Active Substance: SARILUMAB
     Indication: Rheumatoid arthritis
     Dosage: DRUG STRUCTURE DOSAGE : UNKNOWN DRUG INTERVAL DOSAGE : UNKNOWN
     Dates: start: 202112

REACTIONS (2)
  - COVID-19 [Not Recovered/Not Resolved]
  - SARS-CoV-1 test positive [Not Recovered/Not Resolved]

NARRATIVE: CASE EVENT DATE: 20220212
